FAERS Safety Report 8489425-5 (Version None)
Quarter: 2012Q3

REPORT INFORMATION
  Report Type: 
  Country: None (occurrence: None)
  Receive Date: 20120705
  Receipt Date: 20120627
  Transmission Date: 20120928
  Serious: Yes (Other)
  Sender: FDA-Public Use
  Company Number: DK-NAPPMUNDI-DEU-2012-0008993

PATIENT
  Age: 19 Year
  Sex: Female

DRUGS (1)
  1. MORPHINE SULFATE [Suspect]
     Indication: ANAESTHESIA

REACTIONS (1)
  - ANGIOEDEMA [None]
